FAERS Safety Report 21913633 (Version 1)
Quarter: 2023Q1

REPORT INFORMATION
  Report Type: Spontaneous
  Country: US (occurrence: US)
  Receive Date: 20230125
  Receipt Date: 20230125
  Transmission Date: 20230417
  Serious: No
  Sender: FDA-Public Use
  Company Number: US-ALLERGAN-2217233US

PATIENT
  Age: 44 Year
  Sex: Female

DRUGS (1)
  1. BOTOX COSMETIC [Suspect]
     Active Substance: ONABOTULINUMTOXINA
     Indication: Skin wrinkling
     Dosage: 68 UNITS, SINGLE
     Dates: start: 20220504, end: 20220504

REACTIONS (6)
  - Mouth swelling [Not Recovered/Not Resolved]
  - Eye swelling [Unknown]
  - Eye pain [Unknown]
  - Injection site pain [Not Recovered/Not Resolved]
  - Swelling face [Unknown]
  - Headache [Unknown]

NARRATIVE: CASE EVENT DATE: 20220501
